FAERS Safety Report 8004462-2 (Version None)
Quarter: 2011Q4

REPORT INFORMATION
  Report Type: 
  Country: None (occurrence: None)
  Receive Date: 20111221
  Receipt Date: 20111221
  Transmission Date: 20120403
  Serious: No
  Sender: FDA-Public Use
  Company Number: None

PATIENT
  Sex: Female
  Weight: 67.1324 kg

DRUGS (2)
  1. NASONEX [Suspect]
     Indication: RHINITIS ALLERGIC
     Dosage: 50MCG/SPRAY 2 SPRAYS DAILY NASAL SPRAY
     Route: 045
     Dates: start: 20100901
  2. FLUTICASONE FUROATE [Suspect]
     Indication: RHINITIS ALLERGIC
     Dosage: 50 MCG/SPRAY 1 SPRAY DAILY NASAL SPRAY
     Route: 045
     Dates: start: 20100901

REACTIONS (3)
  - DIZZINESS [None]
  - ASTHMA [None]
  - DYSPNOEA [None]
